FAERS Safety Report 10744593 (Version 1)
Quarter: 2015Q1

REPORT INFORMATION
  Report Type: Spontaneous
  Country: ES (occurrence: None)
  Receive Date: 20150126
  Receipt Date: 20150126
  Transmission Date: 20150721
  Serious: Yes (Death)
  Sender: FDA-Public Use
  Company Number: IPC201501-000014

PATIENT
  Age: 73 Year
  Sex: Male

DRUGS (6)
  1. IRON (IRON) (IRON) [Concomitant]
  2. DRONEDARONE [Suspect]
     Active Substance: DRONEDARONE
     Indication: ATRIAL FIBRILLATION
  3. ZOLPIDEM [Concomitant]
     Active Substance: ZOLPIDEM\ZOLPIDEM TARTRATE
  4. DIGOXIN (DIGOXIN) (DIGOXIN) [Concomitant]
     Active Substance: DIGOXIN
  5. ACETYLSALICYLIC ACID (ACETYLSALICYLIC ACID) (ACETYLSALIC ACID) [Concomitant]
  6. METOPROLOL TARTRATE (METOPROLOL TARTRATE) (METOPROLOL TARTRATE) [Suspect]
     Active Substance: METOPROLOL TARTRATE
     Indication: ATRIAL FIBRILLATION

REACTIONS (1)
  - Ventricular fibrillation [None]
